FAERS Safety Report 5478313-4 (Version None)
Quarter: 2007Q4

REPORT INFORMATION
  Report Type: 
  Country: None (occurrence: None)
  Receive Date: 20071005
  Receipt Date: 20071004
  Transmission Date: 20080405
  Serious: Yes (Hospitalization)
  Sender: FDA-Public Use
  Company Number: A0667980A

PATIENT
  Age: 57 Year
  Sex: Female

DRUGS (9)
  1. ALLI [Suspect]
     Indication: WEIGHT LOSS DIET
     Dosage: 3CAP PER DAY
     Route: 048
     Dates: start: 20070625, end: 20070901
  2. CIPRO [Suspect]
     Indication: DIVERTICULITIS
     Route: 042
     Dates: start: 20070901, end: 20070901
  3. TOPROL-XL [Concomitant]
     Dosage: 25MG PER DAY
     Route: 048
  4. OMEPRAZOLE [Concomitant]
  5. VITAMINS [Concomitant]
     Route: 048
  6. ASCORBIC ACID [Concomitant]
  7. CALCIUM + VITAMIN D [Concomitant]
  8. ONE A DAY VITAMIN [Concomitant]
  9. ASPIRIN [Concomitant]
     Dosage: 81MG PER DAY
     Route: 048

REACTIONS (13)
  - ABDOMINAL PAIN LOWER [None]
  - ABDOMINAL TENDERNESS [None]
  - ANOREXIA [None]
  - DIVERTICULITIS [None]
  - DRUG HYPERSENSITIVITY [None]
  - DRUG INEFFECTIVE [None]
  - FLATULENCE [None]
  - HYPERSENSITIVITY [None]
  - RECTAL DISCHARGE [None]
  - STEATORRHOEA [None]
  - WEIGHT DECREASED [None]
  - WEIGHT FLUCTUATION [None]
  - WEIGHT INCREASED [None]
